FAERS Safety Report 5110073-9 (Version None)
Quarter: 2006Q3

REPORT INFORMATION
  Report Type: 
  Country: None (occurrence: None)
  Receive Date: 20060919
  Receipt Date: 20060919
  Transmission Date: 20061208
  Serious: Yes (Other)
  Sender: FDA-Public Use
  Company Number: None

PATIENT
  Age: 21 Year
  Sex: Female
  Weight: 154.223 kg

DRUGS (2)
  1. KENALOG [Suspect]
     Indication: HYPERSENSITIVITY
     Dosage: 40MG   ONCE   SUBDERMAL
     Route: 059
     Dates: start: 20060908, end: 20060908
  2. KENALOG [Suspect]
     Indication: NASAL MUCOSAL DISORDER
     Dosage: 40MG   ONCE   SUBDERMAL
     Route: 059
     Dates: start: 20060908, end: 20060908

REACTIONS (6)
  - BACK PAIN [None]
  - DEPRESSION [None]
  - DYSMENORRHOEA [None]
  - INSOMNIA [None]
  - POOR QUALITY SLEEP [None]
  - VULVOVAGINAL MYCOTIC INFECTION [None]
